FAERS Safety Report 13515050 (Version 2)
Quarter: 2017Q3

REPORT INFORMATION
  Report Type: Other
  Country: GB (occurrence: GB)
  Receive Date: 20170504
  Receipt Date: 20170825
  Transmission Date: 20171127
  Serious: Yes (Disabling, Other)
  Sender: FDA-Public Use
  Company Number: GB-TAKEDA-2017TJP009542

PATIENT
  Age: 71 Year
  Sex: Female
  Weight: 57 kg

DRUGS (8)
  1. GAVISCON                           /00237601/ [Suspect]
     Active Substance: ALUMINUM HYDROXIDE\MAGNESIUM CARBONATE
     Indication: GASTROOESOPHAGEAL REFLUX DISEASE
     Dosage: UNK
     Route: 048
     Dates: start: 20130101, end: 20161101
  2. LANSOPRAZOLE. [Suspect]
     Active Substance: LANSOPRAZOLE
     Indication: GASTROOESOPHAGEAL REFLUX DISEASE
     Dosage: UNK
     Route: 048
     Dates: start: 20130101, end: 20161101
  3. BUCCASTEM [Concomitant]
     Indication: MENIERE^S DISEASE
     Dosage: UNK
  4. QUININE [Concomitant]
     Active Substance: QUININE
     Indication: MENIERE^S DISEASE
     Dosage: UNK
  5. OMEPRAZOLE. [Suspect]
     Active Substance: OMEPRAZOLE
     Indication: GASTROOESOPHAGEAL REFLUX DISEASE
     Dosage: UNK
     Route: 048
     Dates: start: 20130101, end: 20161101
  6. RANITIDINE. [Suspect]
     Active Substance: RANITIDINE
     Indication: GASTROOESOPHAGEAL REFLUX DISEASE
     Dosage: UNK
     Route: 065
     Dates: start: 20160901, end: 20161101
  7. VALIUM [Concomitant]
     Active Substance: DIAZEPAM
     Indication: MENIERE^S DISEASE
     Dosage: UNK
  8. IODINE. [Concomitant]
     Active Substance: IODINE
     Indication: MENIERE^S DISEASE
     Dosage: UNK

REACTIONS (22)
  - Diarrhoea [Recovered/Resolved]
  - Hair texture abnormal [Unknown]
  - Condition aggravated [Recovering/Resolving]
  - Flatulence [Unknown]
  - Drug hypersensitivity [Unknown]
  - Gastrointestinal pain [Recovering/Resolving]
  - Muscle spasms [Unknown]
  - Abdominal pain upper [Unknown]
  - Rectal discharge [Recovering/Resolving]
  - Abdominal distension [Unknown]
  - Eructation [Unknown]
  - Dry skin [Unknown]
  - General physical health deterioration [Unknown]
  - Gastrooesophageal reflux disease [Recovering/Resolving]
  - Abdominal pain [Recovering/Resolving]
  - Abdominal pain upper [Recovering/Resolving]
  - Flatulence [Recovering/Resolving]
  - Product use issue [Recovered/Resolved]
  - Anxiety [Unknown]
  - Condition aggravated [Recovering/Resolving]
  - Diarrhoea haemorrhagic [Recovered/Resolved]
  - Weight decreased [Unknown]

NARRATIVE: CASE EVENT DATE: 20130701
